FAERS Safety Report 9692628 (Version 1)
Quarter: 2013Q4

REPORT INFORMATION
  Report Type: Spontaneous
  Country: US (occurrence: None)
  Receive Date: 20131115
  Receipt Date: 20131115
  Transmission Date: 20140711
  Serious: Yes (Other)
  Sender: FDA-Public Use
  Company Number: None

PATIENT
  Age: 69 Year
  Sex: Female

DRUGS (1)
  1. ENALAPRIL MALEATE 20 MG [Suspect]
     Indication: HYPERTENSION
     Dosage: 90 PILLS
     Route: 048

REACTIONS (1)
  - Drug ineffective [None]
